FAERS Safety Report 13399996 (Version 1)
Quarter: 2017Q2

REPORT INFORMATION
  Report Type: Report from Study
  Country: IE (occurrence: IE)
  Receive Date: 20170404
  Receipt Date: 20170404
  Transmission Date: 20170830
  Serious: Yes (Death, Other)
  Sender: FDA-Public Use
  Company Number: IE-AMGEN-IRLSL2017050717

PATIENT
  Age: 63 Year
  Sex: Male

DRUGS (12)
  1. ROSUVA [Concomitant]
     Active Substance: ROSUVASTATIN CALCIUM
     Dosage: 10 MG, QHS (NIGHT)
     Route: 050
  2. FUROSEMID [Concomitant]
     Active Substance: FUROSEMIDE
     Dosage: 40 MG, QD (ONCE DAILY)
     Route: 050
  3. MOTILIUM [Concomitant]
     Active Substance: DOMPERIDONE
     Dosage: 10 MG, TID (T.D.S)
     Route: 050
  4. ASPIRIN. [Concomitant]
     Active Substance: ASPIRIN
     Dosage: 75 MG, QD (ONCE DAILY)
     Route: 050
  5. METOCOR [Concomitant]
     Active Substance: METOPROLOL TARTRATE
     Dosage: 10.25 MG, TID (T.D.S)
     Route: 050
  6. VEPESID [Concomitant]
     Active Substance: ETOPOSIDE
     Dosage: 100 MG, BID (B.D)
     Route: 050
  7. DEXAMETHASONE. [Concomitant]
     Active Substance: DEXAMETHASONE
     Dosage: 2 MG, UNK (AS PER CHEMO PRESCRIPTION)
     Route: 050
  8. LANZOL [Concomitant]
     Dosage: 30 MG, QD (ONCE DAILY)
     Route: 050
  9. RAMILO [Concomitant]
     Active Substance: RAMIPRIL
     Dosage: 2.5 MG, QD (ONCE DAILY)
     Route: 050
  10. NEULASTA [Suspect]
     Active Substance: PEGFILGRASTIM
     Indication: LUNG NEOPLASM MALIGNANT
     Dosage: 6 MG, AFTER CHEMO (POST CHEMOTHERAPY)
     Route: 058
  11. XYMEL [Concomitant]
     Dosage: 50 MG, QID (Q.D.S)
     Route: 050
  12. RANITIC [Concomitant]
     Active Substance: RANITIDINE HYDROCHLORIDE
     Dosage: 150 MG, BID (B.D)
     Route: 050

REACTIONS (1)
  - Death [Fatal]
